FAERS Safety Report 6362057-0 (Version None)
Quarter: 2009Q3

REPORT INFORMATION
  Report Type: 
  Country: None (occurrence: None)
  Receive Date: 20090918
  Receipt Date: 20090908
  Transmission Date: 20100115
  Serious: Yes (Other)
  Sender: FDA-Public Use
  Company Number: PHHY2009GB20275

PATIENT
  Sex: Female

DRUGS (2)
  1. CLOZARIL [Suspect]
     Indication: SCHIZOPHRENIA
     Dosage: UNK
     Dates: start: 20090416
  2. CLOZARIL [Suspect]
     Dosage: UNK
     Dates: start: 20090612

REACTIONS (2)
  - BUNDLE BRANCH BLOCK RIGHT [None]
  - EOSINOPHIL COUNT INCREASED [None]
